FAERS Safety Report 8310673-9 (Version None)
Quarter: 2012Q2

REPORT INFORMATION
  Report Type: 
  Country: None (occurrence: None)
  Receive Date: 20120425
  Receipt Date: 20120410
  Transmission Date: 20120825
  Serious: Yes (Life-Threatening, Hospitalization)
  Sender: FDA-Public Use
  Company Number: DE-ROCHE-1059899

PATIENT
  Sex: Male
  Weight: 113 kg

DRUGS (2)
  1. ZELBORAF [Suspect]
     Indication: METASTATIC MALIGNANT MELANOMA
     Route: 048
     Dates: start: 20120206, end: 20120209
  2. GABAPENTIN [Concomitant]

REACTIONS (12)
  - SKIN HAEMORRHAGE [None]
  - THROMBOCYTOPENIA [None]
  - LEUKOCYTOSIS [None]
  - DISSEMINATED INTRAVASCULAR COAGULATION [None]
  - METABOLIC DISORDER [None]
  - FIBRINOLYSIS INCREASED [None]
  - HAEMATURIA [None]
  - HAEMATOMA [None]
  - SOFT TISSUE HAEMORRHAGE [None]
  - C-REACTIVE PROTEIN INCREASED [None]
  - ANAEMIA [None]
  - URINARY TRACT INFECTION BACTERIAL [None]
